FAERS Safety Report 9033317 (Version 1)
Quarter: 2013Q1

REPORT INFORMATION
  Report Type: Other
  Country: SE (occurrence: SE)
  Receive Date: 20130128
  Receipt Date: 20130128
  Transmission Date: 20140127
  Serious: Yes (Other)
  Sender: FDA-Public Use
  Company Number: SE-NICOBRDEVP-2013-01123

PATIENT
  Age: 51 Year
  Sex: Female

DRUGS (2)
  1. AMLODIPINE (UNKNOWN) [Suspect]
     Indication: PRODUCT USED FOR UNKNOWN INDICATION
     Dosage: UNK, UNKNOWN
     Route: 065
  2. ENALAPRIL MALEATE (UNKNOWN) [Suspect]
     Indication: PRODUCT USED FOR UNKNOWN INDICATION

REACTIONS (4)
  - Angioedema [Unknown]
  - Oedema mouth [Unknown]
  - Pharyngeal oedema [Unknown]
  - Lip swelling [Unknown]
